FAERS Safety Report 4464935-6 (Version None)
Quarter: 2004Q4

REPORT INFORMATION
  Report Type: 
  Country: None (occurrence: None)
  Receive Date: 20041004
  Receipt Date: 20040315
  Transmission Date: 20050328
  Serious: No
  Sender: FDA-Public Use
  Company Number: 364923

PATIENT
  Age: 80 Year
  Sex: Male

DRUGS (4)
  1. COREG [Suspect]
     Dosage: 3.125MG TWICE PER DAY
     Route: 048
  2. ASPIRIN [Concomitant]
  3. DIOVAN [Concomitant]
  4. LASIX [Concomitant]

REACTIONS (2)
  - DYSPEPSIA [None]
  - ORTHOSTATIC HYPOTENSION [None]
